FAERS Safety Report 12140110 (Version 1)
Quarter: 2016Q1

REPORT INFORMATION
  Report Type: Spontaneous
  Country: US (occurrence: US)
  Receive Date: 20160303
  Receipt Date: 20160303
  Transmission Date: 20160526
  Serious: Yes (Other)
  Sender: FDA-Public Use
  Company Number: US-NAPPMUNDI-USA-2016-0129327

PATIENT
  Sex: Female

DRUGS (1)
  1. OXYCODONE HCL CR TABLETS (SIMILAR TO NDA 22-272) [Suspect]
     Active Substance: OXYCODONE HYDROCHLORIDE
     Indication: DRUG ABUSE
     Route: 048

REACTIONS (11)
  - Drug abuse [Unknown]
  - Euphoric mood [Unknown]
  - Cholelithiasis [Unknown]
  - Energy increased [Unknown]
  - Impaired driving ability [Unknown]
  - Maternal exposure during pregnancy [Unknown]
  - Drug withdrawal syndrome [Unknown]
  - Drug dependence [Unknown]
  - Abortion spontaneous [Unknown]
  - Abnormal behaviour [Unknown]
  - Affect lability [Unknown]

NARRATIVE: CASE EVENT DATE: 2005
